FAERS Safety Report 13843895 (Version 4)
Quarter: 2017Q4

REPORT INFORMATION
  Report Type: Report from Study
  Country: None (occurrence: US)
  Receive Date: 20170808
  Receipt Date: 20171215
  Transmission Date: 20180320
  Serious: Yes (Other)
  Sender: FDA-Public Use
  Company Number: US-ABBVIE-17K-163-2063248-00

PATIENT
  Sex: Female

DRUGS (3)
  1. HUMIRA [Suspect]
     Active Substance: ADALIMUMAB
     Indication: CROHN^S DISEASE
     Route: 058
     Dates: start: 20161104
  2. FOLIC ACID. [Concomitant]
     Active Substance: FOLIC ACID
     Indication: PRODUCT USED FOR UNKNOWN INDICATION
  3. BENTYL [Concomitant]
     Active Substance: DICYCLOMINE HYDROCHLORIDE
     Indication: FLATULENCE

REACTIONS (6)
  - Pelvic pain [Unknown]
  - Gastrointestinal fistula [Recovering/Resolving]
  - Knee arthroplasty [Unknown]
  - Liver function test increased [Recovered/Resolved]
  - Gastrointestinal perforation [Recovering/Resolving]
  - Medical device site joint pain [Recovering/Resolving]

NARRATIVE: CASE EVENT DATE: 2016
